FAERS Safety Report 26053829 (Version 1)
Quarter: 2025Q4

REPORT INFORMATION
  Report Type: Spontaneous
  Country: US (occurrence: None)
  Receive Date: 20251117
  Receipt Date: 20251117
  Transmission Date: 20260118
  Serious: No
  Sender: FDA-CTU
  Company Number: None

PATIENT
  Age: 58 Year
  Sex: Male

DRUGS (1)
  1. ENSIFENTRINE [Suspect]
     Active Substance: ENSIFENTRINE
     Indication: Chronic obstructive pulmonary disease
     Dosage: FREQUENCY : TWICE A DAY;?OTHER ROUTE : INHALED;
     Route: 050
     Dates: start: 20250922, end: 20250922

REACTIONS (3)
  - Dyspnoea [None]
  - Bronchospasm [None]
  - Drug hypersensitivity [None]

NARRATIVE: CASE EVENT DATE: 20251113
